FAERS Safety Report 14004681 (Version 3)
Quarter: 2017Q4

REPORT INFORMATION
  Report Type: Spontaneous
  Country: AR (occurrence: AR)
  Receive Date: 20170922
  Receipt Date: 20171218
  Transmission Date: 20180321
  Serious: Yes (Hospitalization, Other)
  Sender: FDA-Public Use
  Company Number: AR-AMGEN-ARGSP2017144062

PATIENT
  Age: 72 Year
  Sex: Male
  Weight: 86 kg

DRUGS (5)
  1. KYPROLIS [Suspect]
     Active Substance: CARFILZOMIB
     Indication: PLASMA CELL MYELOMA
     Dosage: 20 MG/M2, ON DAY 1 AND 2 OF FIRST CYCLE
     Route: 042
     Dates: start: 20170622, end: 20170623
  2. KYPROLIS [Suspect]
     Active Substance: CARFILZOMIB
     Dosage: 26 MG/M2, ON DAY 8, 9, 15 AND 16 OF FIRST CYCLE
     Route: 042
     Dates: start: 20170629, end: 20170707
  3. KYPROLIS [Suspect]
     Active Substance: CARFILZOMIB
     Dosage: 28 MG/M2, ON DAY 1, 2, 8, 9, 15 AND 16 OF SECOND CYCLE
     Route: 042
     Dates: start: 20170725
  4. DEXAMETHASONE. [Suspect]
     Active Substance: DEXAMETHASONE
     Indication: PLASMA CELL MYELOMA
     Dosage: 40 MG/M2, DAILY ON DAYS 1, 8, 15 AND 22
     Route: 065
     Dates: start: 201706
  5. CYCLOPHOSPHAMIDE. [Suspect]
     Active Substance: CYCLOPHOSPHAMIDE
     Indication: PLASMA CELL MYELOMA
     Dosage: 50 MG/M2, DAILY ON DAY 1 TO 8
     Route: 065
     Dates: start: 201706

REACTIONS (6)
  - Pneumonia [Not Recovered/Not Resolved]
  - Plasma cell myeloma [Unknown]
  - Renal impairment [Not Recovered/Not Resolved]
  - Off label use [Unknown]
  - Hepatitis [Recovered/Resolved]
  - Transaminases increased [Recovered/Resolved]

NARRATIVE: CASE EVENT DATE: 2017
